FAERS Safety Report 10555469 (Version 4)
Quarter: 2015Q1

REPORT INFORMATION
  Report Type: Spontaneous
  Country: US (occurrence: US)
  Receive Date: 20141030
  Receipt Date: 20150123
  Transmission Date: 20150720
  Serious: Yes (Death)
  Sender: FDA-Public Use
  Company Number: US-PFIZER INC-2014297883

PATIENT
  Age: 21 Year
  Sex: Female

DRUGS (12)
  1. GABAPENTIN. [Interacting]
     Active Substance: GABAPENTIN
     Dosage: UNK
  2. DOXYLAMINE [Interacting]
     Active Substance: DOXYLAMINE
     Dosage: UNK
  3. ONDANSETRON HCL [Interacting]
     Active Substance: ONDANSETRON HYDROCHLORIDE
     Dosage: UNK
  4. DEXTROMETHORPHAN HBR [Interacting]
     Active Substance: DEXTROMETHORPHAN HYDROBROMIDE
     Dosage: UNK
  5. TRIMETHOPRIM. [Interacting]
     Active Substance: TRIMETHOPRIM
     Dosage: UNK
  6. ORPHENADRINE [Interacting]
     Active Substance: ORPHENADRINE
     Dosage: UNK
  7. NICOTINE. [Interacting]
     Active Substance: NICOTINE
     Dosage: UNK
  8. FLUOXETINE HCL [Interacting]
     Active Substance: FLUOXETINE HYDROCHLORIDE
     Dosage: UNK
  9. MEPROBAMATE. [Interacting]
     Active Substance: MEPROBAMATE
     Dosage: UNK
  10. SUMATRIPTAN SUCCINATE. [Suspect]
     Active Substance: SUMATRIPTAN SUCCINATE
     Dosage: UNK
  11. CARISOPRODOL. [Interacting]
     Active Substance: CARISOPRODOL
     Dosage: UNK
  12. HYDROXYZINE [Interacting]
     Active Substance: HYDROXYZINE\HYDROXYZINE HYDROCHLORIDE
     Dosage: UNK

REACTIONS (2)
  - Drug interaction [Fatal]
  - Toxicity to various agents [Fatal]
